FAERS Safety Report 9295382 (Version 2)
Quarter: 2013Q2

REPORT INFORMATION
  Report Type: Report from Study
  Country: CH (occurrence: CH)
  Receive Date: 20130517
  Receipt Date: 20130530
  Transmission Date: 20140414
  Serious: Yes (Hospitalization)
  Sender: FDA-Public Use
  Company Number: CH-ROCHE-1225686

PATIENT
  Age: 78 Year
  Sex: Male

DRUGS (3)
  1. RITUXIMAB [Suspect]
     Indication: LYMPHOMA
     Dosage: LAST DOSE PRIOR TO SAE ON 13/MAY/2013
     Route: 042
     Dates: start: 20130503
  2. BENDAMUSTINA [Suspect]
     Indication: LYMPHOMA
     Dosage: LAST DOSE PRIOR TO SAE ON 04/MAY/2013
     Route: 042
     Dates: start: 20130503
  3. LENALIDOMIDE [Suspect]
     Indication: LYMPHOMA
     Dosage: LAST DOSE PRIOR TO SAE ON 15/MAY/2013
     Route: 048
     Dates: start: 20130503

REACTIONS (1)
  - Faecaloma [Recovered/Resolved]
